FAERS Safety Report 15253192 (Version 1)
Quarter: 2018Q3

REPORT INFORMATION
  Report Type: Spontaneous
  Country: ES (occurrence: ES)
  Receive Date: 20180807
  Receipt Date: 20180807
  Transmission Date: 20181010
  Serious: Yes (Hospitalization, Other)
  Sender: FDA-Public Use
  Company Number: ES-009507513-1808ESP002616

PATIENT
  Sex: Male

DRUGS (1)
  1. KEYTRUDA [Suspect]
     Active Substance: PEMBROLIZUMAB
     Indication: NON-SMALL CELL LUNG CANCER
     Dosage: UNK
     Dates: start: 2018

REACTIONS (6)
  - Septic shock [Unknown]
  - Dysphagia [Unknown]
  - Myocarditis [Unknown]
  - Neck pain [Unknown]
  - Myasthenia gravis [Unknown]
  - Pain [Unknown]

NARRATIVE: CASE EVENT DATE: 2018
